FAERS Safety Report 5390075-8 (Version None)
Quarter: 2007Q3

REPORT INFORMATION
  Report Type: 
  Country: None (occurrence: None)
  Receive Date: 20070718
  Receipt Date: 20070716
  Transmission Date: 20080115
  Serious: Yes (Hospitalization)
  Sender: FDA-Public Use
  Company Number: A0661967A

PATIENT
  Age: 70 Year
  Sex: Female

DRUGS (7)
  1. TOPOTECAN [Suspect]
     Dosage: 4MGM2 CYCLIC
     Route: 042
     Dates: start: 20070628
  2. CARBOPLATIN [Suspect]
     Dosage: 466MG CYCLIC
     Route: 042
     Dates: start: 20070628
  3. CELEXA [Concomitant]
     Indication: DEPRESSION
     Dosage: 25MG PER DAY
     Route: 048
  4. CARDIZEM [Concomitant]
     Dosage: 180MG PER DAY
     Dates: start: 20070401
  5. MS CONTIN [Concomitant]
     Dosage: 15MG TWICE PER DAY
     Dates: start: 20070625
  6. PHENERGAN HCL [Concomitant]
     Indication: NAUSEA
  7. DILAUDID [Concomitant]
     Indication: PAIN
     Dosage: 2MG SIX TIMES PER DAY

REACTIONS (10)
  - ANAEMIA [None]
  - CHILLS [None]
  - DEHYDRATION [None]
  - EATING DISORDER [None]
  - FEBRILE NEUTROPENIA [None]
  - NAUSEA [None]
  - PYREXIA [None]
  - THROMBOCYTOPENIA [None]
  - URINARY TRACT INFECTION [None]
  - VOMITING [None]
